FAERS Safety Report 16653915 (Version 2)
Quarter: 2020Q1

REPORT INFORMATION
  Report Type: Spontaneous
  Country: US (occurrence: US)
  Receive Date: 20190731
  Receipt Date: 20200330
  Transmission Date: 20200409
  Serious: Yes (Other)
  Sender: FDA-Public Use
  Company Number: US-GILEAD-2019-0420352

PATIENT
  Age: 50 Year
  Sex: Male

DRUGS (52)
  1. ATRIPLA [Suspect]
     Active Substance: EFAVIRENZ\EMTRICITABINE\TENOFOVIR DISOPROXIL FUMARATE
     Indication: HIV INFECTION
     Dosage: 1 DOSAGE FORM, QD
     Route: 048
     Dates: start: 20090206, end: 201907
  2. TRUVADA [Suspect]
     Active Substance: EMTRICITABINE\TENOFOVIR DISOPROXIL FUMARATE
     Indication: HIV INFECTION
     Dosage: 1 DOSAGE FORM, QD
     Route: 065
     Dates: start: 200409, end: 20090118
  3. KETOCONAZOLE. [Concomitant]
     Active Substance: KETOCONAZOLE
  4. PHENTERMINE. [Concomitant]
     Active Substance: PHENTERMINE
  5. AMOXICILLIN. [Concomitant]
     Active Substance: AMOXICILLIN
  6. NASCOBAL [Concomitant]
     Active Substance: CYANOCOBALAMIN
  7. BIKTARVY [Concomitant]
     Active Substance: BICTEGRAVIR SODIUM\EMTRICITABINE\TENOFOVIR ALAFENAMIDE FUMARATE
  8. AMLODIPINE BESYLATE. [Concomitant]
     Active Substance: AMLODIPINE BESYLATE
  9. LANTUS [Concomitant]
     Active Substance: INSULIN GLARGINE
  10. COZAAR [Concomitant]
     Active Substance: LOSARTAN POTASSIUM
  11. METFORMIN [Concomitant]
     Active Substance: METFORMIN HYDROCHLORIDE
  12. SINGULAIR [Concomitant]
     Active Substance: MONTELUKAST SODIUM
  13. PRAVASTATIN SODIUM. [Concomitant]
     Active Substance: PRAVASTATIN SODIUM
  14. RITALIN [Concomitant]
     Active Substance: METHYLPHENIDATE HYDROCHLORIDE
  15. TAMIFLU [Concomitant]
     Active Substance: OSELTAMIVIR PHOSPHATE
  16. CLARITIN ALLERGY DECONGESTANT [Concomitant]
  17. GLIPIZIDE. [Concomitant]
     Active Substance: GLIPIZIDE
  18. COMPAZINE [PROCHLORPERAZINE EDISYLATE] [Concomitant]
     Active Substance: PROCHLORPERAZINE EDISYLATE
  19. TYLENOL WITH CODEINE [Concomitant]
     Active Substance: ACETAMINOPHEN\CODEINE PHOSPHATE
  20. IRON COMPOUND [Concomitant]
  21. REYATAZ [Concomitant]
     Active Substance: ATAZANAVIR SULFATE
  22. PROPECIA [Concomitant]
     Active Substance: FINASTERIDE
  23. TRUVADA [Suspect]
     Active Substance: EMTRICITABINE\TENOFOVIR DISOPROXIL FUMARATE
     Dosage: 1 DOSAGE FORM
     Route: 065
     Dates: start: 200907, end: 201303
  24. TRILIPIX [Concomitant]
     Active Substance: FENOFIBRIC ACID
  25. PRILOSEC [Concomitant]
     Active Substance: OMEPRAZOLE MAGNESIUM
  26. TRICOR [ADENOSINE] [Concomitant]
     Active Substance: ADENOSINE
  27. ZOFRAN [Concomitant]
     Active Substance: ONDANSETRON HYDROCHLORIDE
  28. CETIRIZINE [Concomitant]
     Active Substance: CETIRIZINE HYDROCHLORIDE
  29. TERBINAFINE. [Concomitant]
     Active Substance: TERBINAFINE
  30. HYDROCHLOROTHIAZIDE. [Concomitant]
     Active Substance: HYDROCHLOROTHIAZIDE
  31. NORVASC [Concomitant]
     Active Substance: AMLODIPINE BESYLATE
  32. LEVAQUIN [Concomitant]
     Active Substance: LEVOFLOXACIN
  33. MODAFINIL. [Concomitant]
     Active Substance: MODAFINIL
  34. RTV [Concomitant]
  35. KAYEXALATE [Concomitant]
     Active Substance: SODIUM POLYSTYRENE SULFONATE
  36. PATANASE [Concomitant]
     Active Substance: OLOPATADINE HYDROCHLORIDE
  37. NORCO [Concomitant]
     Active Substance: ACETAMINOPHEN\HYDROCODONE BITARTRATE
  38. PROVIGIL [CHORIONIC GONADOTROPHIN] [Concomitant]
     Active Substance: GONADOTROPHIN, CHORIONIC
  39. ADIPEX [PHENTERMINE HYDROCHLORIDE] [Concomitant]
  40. ATV [Concomitant]
  41. FLUTICASONE. [Concomitant]
     Active Substance: FLUTICASONE
  42. LIPITOR [Concomitant]
     Active Substance: ATORVASTATIN CALCIUM
  43. GEMFIBROZIL. [Concomitant]
     Active Substance: GEMFIBROZIL
  44. ZOLOFT [Concomitant]
     Active Substance: SERTRALINE HYDROCHLORIDE
  45. CLINDAMYCIN. [Concomitant]
     Active Substance: CLINDAMYCIN
  46. 3TC [Concomitant]
     Active Substance: LAMIVUDINE
  47. BENAZEPRIL [Concomitant]
     Active Substance: BENAZEPRIL HYDROCHLORIDE
  48. SERTRALINE [Concomitant]
     Active Substance: SERTRALINE HYDROCHLORIDE
  49. NUVIGIL [Concomitant]
     Active Substance: ARMODAFINIL
  50. HYDROXYZINE [Concomitant]
     Active Substance: HYDROXYZINE HYDROCHLORIDE
  51. REGLAN [Concomitant]
     Active Substance: METOCLOPRAMIDE HYDROCHLORIDE
  52. SIMVASTATIN. [Concomitant]
     Active Substance: SIMVASTATIN

REACTIONS (12)
  - Chronic kidney disease [Not Recovered/Not Resolved]
  - Pain [Unknown]
  - Anhedonia [Unknown]
  - Emotional distress [Unknown]
  - Osteonecrosis [Not Recovered/Not Resolved]
  - Multiple fractures [Unknown]
  - Economic problem [Unknown]
  - Renal failure [Not Recovered/Not Resolved]
  - Bone loss [Not Recovered/Not Resolved]
  - Tooth loss [Not Recovered/Not Resolved]
  - Bone density abnormal [Unknown]
  - Anxiety [Unknown]

NARRATIVE: CASE EVENT DATE: 200708
